FAERS Safety Report 23518960 (Version 1)
Quarter: 2024Q1

REPORT INFORMATION
  Report Type: Report from Study
  Country: US (occurrence: US)
  Receive Date: 20240213
  Receipt Date: 20240213
  Transmission Date: 20240410
  Serious: Yes (Disabling)
  Sender: FDA-Public Use
  Company Number: US-TAIHOP-2024-001180

PATIENT
  Age: 73 Year
  Sex: Female
  Weight: 76.2 kg

DRUGS (1)
  1. LONSURF [Suspect]
     Active Substance: TIPIRACIL HYDROCHLORIDE\TRIFLURIDINE
     Indication: Malignant neoplasm of unknown primary site
     Dosage: CYCLE UNKNOWN
     Route: 048
     Dates: start: 20240101

REACTIONS (4)
  - Gait inability [Unknown]
  - Haemoglobin decreased [Unknown]
  - Fatigue [Unknown]
  - Off label use [Unknown]
